FAERS Safety Report 8928622 (Version 1)
Quarter: 2012Q4

REPORT INFORMATION
  Report Type: 
  Country: US (occurrence: US)
  Receive Date: 20121128
  Receipt Date: 20121128
  Transmission Date: 20130627
  Serious: No
  Sender: FDA-Public Use
  Company Number: US-BAYER-2012-119863

PATIENT
  Age: 39 Year
  Sex: Female
  Weight: 75.74 kg

DRUGS (8)
  1. BETASERON [Suspect]
     Dosage: 0.3 mg, UNK
     Route: 048
  2. BETASERON [Suspect]
     Dosage: 0.25 ml, QOD, 1-2 week
     Route: 058
  3. BETASERON [Suspect]
     Dosage: 0.5 ml, QOD, 3-4 week
     Route: 058
  4. BETASERON [Suspect]
     Dosage: 0.75 ml, QOD, 5-6 week
     Route: 058
  5. BETASERON [Suspect]
     Dosage: 1 ml, QOD, 7 week
     Route: 058
  6. COD LIVER OIL [Concomitant]
     Route: 048
  7. VITAMIN D [Concomitant]
     Dosage: 1000 u, UNK
     Route: 048
  8. ALEVE [Concomitant]
     Dosage: 220 mg, UNK
     Route: 048

REACTIONS (2)
  - Influenza like illness [Unknown]
  - Panic attack [Recovered/Resolved]
